FAERS Safety Report 11104307 (Version 1)
Quarter: 2015Q2

REPORT INFORMATION
  Report Type: Spontaneous
  Country: RU (occurrence: RU)
  Receive Date: 20150511
  Receipt Date: 20150511
  Transmission Date: 20150821
  Serious: Yes (Other)
  Sender: FDA-Public Use
  Company Number: RU-TEVA-561207ISR

PATIENT
  Age: 39 Year
  Sex: Female

DRUGS (1)
  1. SALAMOL ECO EASI BREATH [Suspect]
     Active Substance: ALBUTEROL
     Route: 055

REACTIONS (1)
  - Blindness transient [Recovered/Resolved]
